FAERS Safety Report 16714073 (Version 1)
Quarter: 2019Q3

REPORT INFORMATION
  Report Type: Spontaneous
  Country: US (occurrence: US)
  Receive Date: 20190819
  Receipt Date: 20190819
  Transmission Date: 20191004
  Serious: Yes (Hospitalization)
  Sender: FDA-Public Use
  Company Number: US-BRISTOL-MYERS SQUIBB COMPANY-BMS-2019-079719

PATIENT
  Sex: Female

DRUGS (1)
  1. OPDIVO [Suspect]
     Active Substance: NIVOLUMAB
     Indication: FALLOPIAN TUBE CANCER
     Dosage: 480 MILLIGRAM, Q4WK
     Route: 042

REACTIONS (2)
  - Hospitalisation [Unknown]
  - Intentional product use issue [Unknown]
